FAERS Safety Report 21926796 (Version 1)
Quarter: 2023Q1

REPORT INFORMATION
  Report Type: Spontaneous
  Country: US (occurrence: None)
  Receive Date: 20230128
  Receipt Date: 20230128
  Transmission Date: 20230417
  Serious: Yes (Hospitalization)
  Sender: FDA-Public Use
  Company Number: None

PATIENT
  Sex: Male
  Weight: 99.43 kg

DRUGS (4)
  1. DARATUMUMAB\HYALURONIDASE-FIHJ [Suspect]
     Active Substance: DARATUMUMAB\HYALURONIDASE-FIHJ
     Indication: Drug therapy
     Dates: end: 20230118
  2. DEXAMETHASONE [Suspect]
     Active Substance: DEXAMETHASONE
     Indication: Drug therapy
     Dates: end: 20221216
  3. LENALIDOMIDE [Suspect]
     Active Substance: LENALIDOMIDE
     Indication: Drug therapy
     Dates: end: 20230124
  4. VELCADE [Suspect]
     Active Substance: BORTEZOMIB
     Indication: Drug therapy
     Dates: end: 20230118

REACTIONS (1)
  - Cellulitis [None]

NARRATIVE: CASE EVENT DATE: 20210629
